FAERS Safety Report 25636965 (Version 1)
Quarter: 2025Q3

REPORT INFORMATION
  Report Type: Spontaneous
  Country: GB (occurrence: GB)
  Receive Date: 20250804
  Receipt Date: 20250804
  Transmission Date: 20251021
  Serious: Yes (Hospitalization, Other)
  Sender: AUROBINDO
  Company Number: GB-AUROBINDO-AUR-APL-2011-00254

PATIENT
  Age: 60 Year
  Sex: Female

DRUGS (16)
  1. CITALOPRAM HYDROBROMIDE [Suspect]
     Active Substance: CITALOPRAM HYDROBROMIDE
     Indication: Product used for unknown indication
     Route: 065
  2. SERTRALINE [Suspect]
     Active Substance: SERTRALINE HYDROCHLORIDE
     Indication: Product used for unknown indication
     Dosage: 100 MG,ONCE A DAY,
     Route: 065
  3. SERTRALINE [Suspect]
     Active Substance: SERTRALINE HYDROCHLORIDE
     Route: 065
  4. SIMVASTATIN [Suspect]
     Active Substance: SIMVASTATIN
     Indication: Product used for unknown indication
     Route: 065
  5. SIMVASTATIN [Suspect]
     Active Substance: SIMVASTATIN
     Route: 065
  6. ATENOLOL [Suspect]
     Active Substance: ATENOLOL
     Indication: Product used for unknown indication
     Dosage: 25 MG,ONCE A DAY,
     Route: 065
  7. DIAZEPAM [Suspect]
     Active Substance: DIAZEPAM
     Indication: Depression
     Route: 065
  8. ZOPICLONE [Suspect]
     Active Substance: ZOPICLONE
     Indication: Sleep disorder
     Route: 065
  9. LYRICA [Suspect]
     Active Substance: PREGABALIN
     Indication: Generalised anxiety disorder
     Dosage: 50 MG,3 TIMES A DAY,
     Route: 065
     Dates: start: 201005
  10. LYRICA [Suspect]
     Active Substance: PREGABALIN
     Dosage: 100 MG,3 TIMES A DAY,
     Route: 065
     Dates: end: 20100913
  11. LYRICA [Suspect]
     Active Substance: PREGABALIN
     Route: 065
  12. LYRICA [Suspect]
     Active Substance: PREGABALIN
     Dosage: 75 MG,3 TIMES A DAY,
     Route: 065
     Dates: start: 201007, end: 201008
  13. ASPIRIN [Suspect]
     Active Substance: ASPIRIN
     Indication: Product used for unknown indication
     Dosage: 75 MG,ONCE A DAY,
     Route: 065
  14. DOSULEPIN HYDROCHLORIDE [Suspect]
     Active Substance: DOTHIEPIN HYDROCHLORIDE
     Indication: Depression
     Dosage: 50 MG,ONCE A DAY,
     Route: 065
  15. PROMETHAZINE [Suspect]
     Active Substance: PROMETHAZINE HYDROCHLORIDE
     Indication: Sleep disorder
     Route: 065
  16. PROMETHAZINE [Suspect]
     Active Substance: PROMETHAZINE HYDROCHLORIDE
     Indication: Anxiety

REACTIONS (27)
  - Overdose [Unknown]
  - Aggression [Unknown]
  - Anaemia [Unknown]
  - Anxiety [Recovering/Resolving]
  - Decreased appetite [Recovering/Resolving]
  - Oral discomfort [Unknown]
  - Malaise [Unknown]
  - Vomiting [Unknown]
  - Illness anxiety disorder [Unknown]
  - Myalgia [Not Recovered/Not Resolved]
  - Muscle twitching [Not Recovered/Not Resolved]
  - Muscle atrophy [Not Recovered/Not Resolved]
  - Pain [Unknown]
  - Panic attack [Unknown]
  - Tremor [Unknown]
  - Suicidal ideation [Unknown]
  - Hyperhidrosis [Unknown]
  - Urinary tract infection [Unknown]
  - Depression [Recovering/Resolving]
  - Syncope [Unknown]
  - Insomnia [Unknown]
  - Lethargy [Unknown]
  - Nausea [Recovering/Resolving]
  - Confusional state [Unknown]
  - Weight decreased [Unknown]
  - Dizziness [Unknown]
  - Diarrhoea [Unknown]

NARRATIVE: CASE EVENT DATE: 20100101
